FAERS Safety Report 7712775-4 (Version None)
Quarter: 2011Q3

REPORT INFORMATION
  Report Type: 
  Country: None (occurrence: None)
  Receive Date: 20110826
  Receipt Date: 20110819
  Transmission Date: 20111222
  Serious: Yes (Other)
  Sender: FDA-Public Use
  Company Number: US-GLAXOSMITHKLINE-A0941735A

PATIENT
  Age: 62 Year
  Sex: Female

DRUGS (10)
  1. METFORMIN HCL [Concomitant]
  2. ACETAMINOPHEN AND HYDROCODONE BITARTRATE [Concomitant]
  3. OFLOXACIN [Suspect]
     Indication: PRODUCT USED FOR UNKNOWN INDICATION
     Route: 047
     Dates: start: 20110101
  4. LOSARTAN [Concomitant]
  5. ARIXTRA [Suspect]
     Dosage: 7.5MG PER DAY
     Route: 058
     Dates: start: 20080301
  6. AVASTIN (SIMVASTATIN) [Concomitant]
  7. DIAZEPAM [Concomitant]
  8. LIPITOR [Concomitant]
  9. TRIAZOLAM [Concomitant]
  10. PROTONIX [Concomitant]

REACTIONS (3)
  - EYE HAEMORRHAGE [None]
  - VISION BLURRED [None]
  - LACRIMATION INCREASED [None]
